FAERS Safety Report 21304242 (Version 2)
Quarter: 2022Q3

REPORT INFORMATION
  Report Type: Report from Study
  Country: GB (occurrence: GB)
  Receive Date: 20220907
  Receipt Date: 20220912
  Transmission Date: 20221026
  Serious: Yes (Other)
  Sender: FDA-Public Use
  Company Number: GB-GLAXOSMITHKLINE-GB2022GSK112040

PATIENT
  Age: 49 Year
  Sex: Female

DRUGS (2)
  1. CYCLOPHOSPHAMIDE [Suspect]
     Active Substance: CYCLOPHOSPHAMIDE
     Indication: Plasma cell myeloma
     Dosage: 500 MG, CYC, (DAY 1 AND DAY 8)
     Route: 048
     Dates: start: 20220705, end: 20220712
  2. DEXAMETHASONE [Suspect]
     Active Substance: DEXAMETHASONE
     Indication: Plasma cell myeloma
     Dosage: 40 MG, Z(DAY 1, 8, 15 AND 22)
     Route: 048
     Dates: start: 20220705

REACTIONS (3)
  - Eye pain [Recovering/Resolving]
  - Visual impairment [Recovering/Resolving]
  - Thrombocytopenia [Not Recovered/Not Resolved]

NARRATIVE: CASE EVENT DATE: 20220718
